FAERS Safety Report 5353238-3 (Version None)
Quarter: 2007Q2

REPORT INFORMATION
  Report Type: 
  Country: None (occurrence: None)
  Receive Date: 20070608
  Receipt Date: 20070530
  Transmission Date: 20071010
  Serious: Yes (Hospitalization, Congenital Anomaly, Other)
  Sender: FDA-Public Use
  Company Number: 2007US000943

PATIENT
  Sex: Male

DRUGS (5)
  1. AMEVIVE [Suspect]
     Indication: DRUG EXPOSURE DURING PREGNANCY
     Dosage: INTRAMUSCULAR
     Route: 030
     Dates: start: 20030916
  2. VASOTEC [Concomitant]
  3. NORVASC [Concomitant]
  4. HYDROCHLOROTHIAZIDE [Concomitant]
  5. BETAMETHASONE/NEOMYCIN (BETAMETHASONE) [Concomitant]

REACTIONS (13)
  - BLOOD PRESSURE DECREASED [None]
  - BRADYCARDIA NEONATAL [None]
  - CAESAREAN SECTION [None]
  - CARDIAC MURMUR [None]
  - DRUG EXPOSURE DURING PREGNANCY [None]
  - GRUNTING [None]
  - HYPOGLYCAEMIA NEONATAL [None]
  - INFANTILE APNOEIC ATTACK [None]
  - NASAL FLARING [None]
  - NEONATAL RESPIRATORY DISTRESS SYNDROME [None]
  - PREMATURE BABY [None]
  - SEPSIS [None]
  - SEPSIS NEONATAL [None]
